FAERS Safety Report 10252017 (Version 2)
Quarter: 2014Q2

REPORT INFORMATION
  Report Type: Report from Study
  Country: CA (occurrence: CA)
  Receive Date: 20140623
  Receipt Date: 20140623
  Transmission Date: 20141212
  Serious: Yes (Other)
  Sender: FDA-Public Use
  Company Number: PHHY2013CA063034

PATIENT
  Age: 29 Year
  Sex: Female

DRUGS (2)
  1. GILENYA [Suspect]
     Indication: RELAPSING-REMITTING MULTIPLE SCLEROSIS
     Dosage: 0.5 MG, QD
     Route: 048
     Dates: start: 20130614
  2. GILENYA [Suspect]
     Dosage: 0.5 MG, QD
     Route: 048

REACTIONS (22)
  - Central nervous system lesion [Unknown]
  - Herpes zoster [Unknown]
  - Abnormal sensation in eye [Unknown]
  - Vision blurred [Unknown]
  - Muscle spasticity [Unknown]
  - Joint stiffness [Unknown]
  - Sleep disorder [Unknown]
  - Musculoskeletal pain [Unknown]
  - Insomnia [Unknown]
  - Nausea [Unknown]
  - Extrasystoles [Unknown]
  - Fatigue [Unknown]
  - Gait disturbance [Unknown]
  - Arthralgia [Unknown]
  - Chest discomfort [Unknown]
  - Heart rate irregular [Unknown]
  - Decreased appetite [Unknown]
  - Paraesthesia [Unknown]
  - Heart rate decreased [Recovered/Resolved]
  - Headache [Unknown]
  - Dyspnoea [Unknown]
  - Back pain [Unknown]
